FAERS Safety Report 11504224 (Version 1)
Quarter: 2015Q3

REPORT INFORMATION
  Report Type: Spontaneous
  Country: US (occurrence: US)
  Receive Date: 20150914
  Receipt Date: 20150914
  Transmission Date: 20151125
  Serious: Yes (Hospitalization)
  Sender: FDA-Public Use
  Company Number: US-DSJP-DSU-2015-118048

PATIENT

DRUGS (2)
  1. BENICAR [Suspect]
     Active Substance: OLMESARTAN MEDOXOMIL
     Dosage: 40 MG, UNK
     Dates: start: 200711, end: 201406
  2. BENICAR [Suspect]
     Active Substance: OLMESARTAN MEDOXOMIL
     Indication: HYPERTENSION
     Dosage: 40 MG, QD
     Route: 048
     Dates: end: 20131017

REACTIONS (15)
  - Pancreatic atrophy [Unknown]
  - Lipoma [Unknown]
  - Faecal incontinence [Unknown]
  - Acute kidney injury [Unknown]
  - Diverticulum intestinal [Unknown]
  - Irritable bowel syndrome [Unknown]
  - Malabsorption [Unknown]
  - Lymphoid tissue hyperplasia [Unknown]
  - Intestinal mass [Unknown]
  - Large intestine polyp [Unknown]
  - Cardiac disorder [Unknown]
  - Dyspepsia [Unknown]
  - Pancreatic insufficiency [Unknown]
  - Coeliac disease [Unknown]
  - Hepatic steatosis [Unknown]

NARRATIVE: CASE EVENT DATE: 2008
